FAERS Safety Report 12784334 (Version 1)
Quarter: 2016Q3

REPORT INFORMATION
  Report Type: Spontaneous
  Country: GB (occurrence: GB)
  Receive Date: 20160927
  Receipt Date: 20160927
  Transmission Date: 20161109
  Serious: Yes (Other)
  Sender: FDA-Public Use
  Company Number: GB-BEH-200813740

PATIENT
  Age: 25 Year
  Sex: Female

DRUGS (1)
  1. SANDOGLOBULIN NF [Suspect]
     Active Substance: HUMAN IMMUNOGLOBULIN G
     Indication: MYASTHENIC SYNDROME
     Dosage: DAILY DOSE QUANTITY: 30, DAILY DOSE UNIT: G
     Route: 042
     Dates: start: 20080611, end: 20080612

REACTIONS (1)
  - Meningitis aseptic [Unknown]

NARRATIVE: CASE EVENT DATE: 20080612
